FAERS Safety Report 9393505 (Version 1)
Quarter: 2013Q3

REPORT INFORMATION
  Report Type: Spontaneous
  Country: US (occurrence: None)
  Receive Date: 20130709
  Receipt Date: 20130709
  Transmission Date: 20140515
  Serious: No
  Sender: FDA-Public Use
  Company Number: None

PATIENT
  Age: 52 Year
  Sex: Male

DRUGS (2)
  1. DIVALPROEX SODIUM [Suspect]
     Route: 048
  2. DIVALPROEX SODIUM [Suspect]

REACTIONS (4)
  - Hyperammonaemia [None]
  - Disorientation [None]
  - Hyperammonaemic encephalopathy [None]
  - Restlessness [None]
